FAERS Safety Report 14482990 (Version 1)
Quarter: 2018Q1

REPORT INFORMATION
  Report Type: Spontaneous
  Country: PL (occurrence: PL)
  Receive Date: 20180203
  Receipt Date: 20180203
  Transmission Date: 20180509
  Serious: Yes (Other)
  Sender: FDA-Public Use
  Company Number: PL-AUROBINDO-AUR-APL-2017-46384

PATIENT
  Age: 52 Year
  Sex: Male

DRUGS (22)
  1. TIVICAY [Concomitant]
     Active Substance: DOLUTEGRAVIR SODIUM
  2. EPIVIR [Concomitant]
     Active Substance: LAMIVUDINE
  3. VITAMIN D3 [Concomitant]
     Active Substance: CHOLECALCIFEROL
  4. ENCORTON                           /00044701/ [Concomitant]
     Active Substance: PREDNISONE
  5. DOXAR                              /00639301/ [Concomitant]
  6. CELLCEPT [Concomitant]
     Active Substance: MYCOPHENOLATE MOFETIL\MYCOPHENOLATE MOFETIL HYDROCHLORIDE
  7. RIBAVIRIN. [Interacting]
     Active Substance: RIBAVIRIN
     Indication: HEPATITIS C VIRUS TEST POSITIVE
     Dosage: 800 MG, UNK
     Route: 065
  8. IPOREL [Concomitant]
     Active Substance: CLONIDINE
  9. FUROSEMIDUM                        /00032601/ [Concomitant]
  10. RIBAVIRIN. [Suspect]
     Active Substance: RIBAVIRIN
     Indication: PRODUCT USED FOR UNKNOWN INDICATION
     Dosage: 200 UNK, UNK
     Route: 065
  11. MAGNEZ [Concomitant]
  12. AMLOPIN                            /00972401/ [Concomitant]
  13. SOVALDI [Interacting]
     Active Substance: SOFOSBUVIR
     Indication: PRODUCT USED FOR UNKNOWN INDICATION
     Dosage: ()
     Route: 065
  14. ZIAGEN [Concomitant]
     Active Substance: ABACAVIR SULFATE
  15. ALLOPURINOL. [Concomitant]
     Active Substance: ALLOPURINOL
  16. CALCIUM [Concomitant]
     Active Substance: CALCIUM
  17. RIBAVIRIN. [Interacting]
     Active Substance: RIBAVIRIN
     Dosage: 200 UNK, UNK
     Route: 065
  18. SOVALDI [Interacting]
     Active Substance: SOFOSBUVIR
     Dosage: 400 MG, UNK
     Route: 065
  19. RIBAVIRIN. [Interacting]
     Active Substance: RIBAVIRIN
     Dosage: 800 MG, UNK
     Route: 065
  20. SOVALDI [Interacting]
     Active Substance: SOFOSBUVIR
     Indication: HEPATITIS C VIRUS TEST POSITIVE
     Dosage: 400 MG, UNK
     Route: 065
  21. BISOCARD [Concomitant]
     Active Substance: BISOPROLOL
  22. PROGRAF [Concomitant]
     Active Substance: TACROLIMUS\TACROLIMUS ANHYDROUS

REACTIONS (5)
  - Exercise tolerance decreased [Unknown]
  - Drug level decreased [Unknown]
  - Asthenia [Unknown]
  - Drug interaction [Unknown]
  - Haemoglobin decreased [Unknown]
